FAERS Safety Report 9057955 (Version 1)
Quarter: 2013Q1

REPORT INFORMATION
  Report Type: Spontaneous
  Country: IT (occurrence: IT)
  Receive Date: 20130209
  Receipt Date: 20130209
  Transmission Date: 20140127
  Serious: Yes (Hospitalization)
  Sender: FDA-Public Use
  Company Number: IT-MYLANLABS-2013S1002255

PATIENT
  Age: 37 Year
  Sex: Male

DRUGS (8)
  1. LORAZEPAM [Suspect]
     Route: 048
     Dates: start: 20130123, end: 20130123
  2. SERENASE /00015301/ [Concomitant]
     Indication: DEPRESSION
  3. IMOVANE [Concomitant]
     Indication: PRODUCT USED FOR UNKNOWN INDICATION
  4. ANTABUSE [Concomitant]
     Indication: ALCOHOL REHABILITATION
  5. DEPAKOTE [Concomitant]
     Indication: PRODUCT USED FOR UNKNOWN INDICATION
  6. ENTUMIN [Concomitant]
     Indication: PRODUCT USED FOR UNKNOWN INDICATION
  7. LYRICA [Concomitant]
     Indication: PRODUCT USED FOR UNKNOWN INDICATION
  8. CITALOPRAM [Concomitant]
     Indication: PRODUCT USED FOR UNKNOWN INDICATION

REACTIONS (6)
  - Overdose [Recovering/Resolving]
  - Self injurious behaviour [Recovering/Resolving]
  - Drug abuse [Recovering/Resolving]
  - Hypotension [Recovering/Resolving]
  - Tachycardia [Recovering/Resolving]
  - Sopor [Recovering/Resolving]
